FAERS Safety Report 11502160 (Version 3)
Quarter: 2015Q4

REPORT INFORMATION
  Report Type: Spontaneous
  Country: US (occurrence: US)
  Receive Date: 20150914
  Receipt Date: 20151028
  Transmission Date: 20160304
  Serious: Yes (Other)
  Sender: FDA-Public Use
  Company Number: US-TEVA-592924USA

PATIENT
  Age: 62 Year
  Sex: Male
  Weight: 64.01 kg

DRUGS (11)
  1. COLCHICINE. [Concomitant]
     Active Substance: COLCHICINE
  2. POTASSIUM [Concomitant]
     Active Substance: POTASSIUM
  3. COREG [Concomitant]
     Active Substance: CARVEDILOL
  4. ASPIRIN. [Concomitant]
     Active Substance: ASPIRIN
  5. SYNRIBO [Suspect]
     Active Substance: OMACETAXINE MEPESUCCINATE
     Indication: CHRONIC MYELOID LEUKAEMIA
     Dosage: 4 MILLIGRAM DAILY; HOME ADMINISTRATION
     Route: 058
     Dates: start: 20150812, end: 20150819
  6. VERAPAMIL [Concomitant]
     Active Substance: VERAPAMIL HYDROCHLORIDE
  7. PREDNISONE. [Concomitant]
     Active Substance: PREDNISONE
  8. ATORVASTATIN [Concomitant]
     Active Substance: ATORVASTATIN
  9. PANTOPRAZOLE [Concomitant]
     Active Substance: PANTOPRAZOLE SODIUM
  10. XANAX [Concomitant]
     Active Substance: ALPRAZOLAM
  11. SYNRIBO [Suspect]
     Active Substance: OMACETAXINE MEPESUCCINATE
     Dosage: RESUMED AT A LOWER FREQUENCY AND DOSE
     Dates: start: 20150929, end: 20151004

REACTIONS (4)
  - White blood cell count decreased [Recovering/Resolving]
  - Neutropenia [Recovered/Resolved with Sequelae]
  - Pancytopenia [Unknown]
  - Red blood cell count decreased [Recovering/Resolving]

NARRATIVE: CASE EVENT DATE: 20150902
